FAERS Safety Report 4602957-2 (Version None)
Quarter: 2005Q1

REPORT INFORMATION
  Report Type: 
  Country: None (occurrence: None)
  Receive Date: 20050307
  Receipt Date: 20050228
  Transmission Date: 20050727
  Serious: Yes (Hospitalization)
  Sender: FDA-Public Use
  Company Number: K200500075

PATIENT
  Sex: Female

DRUGS (1)
  1. TAPAZOLE [Suspect]
     Indication: HYPERTHYROIDISM
     Dosage: 5 MG, BID,
     Dates: start: 20041001, end: 20041201

REACTIONS (8)
  - ACUTE MYELOID LEUKAEMIA [None]
  - ASTHENIA [None]
  - CHILLS [None]
  - HYPOTHYROIDISM [None]
  - OLIGOMENORRHOEA [None]
  - PALPITATIONS [None]
  - PHARYNGOLARYNGEAL PAIN [None]
  - PYREXIA [None]
